FAERS Safety Report 9642841 (Version 1)
Quarter: 2013Q4

REPORT INFORMATION
  Report Type: Spontaneous
  Country: ES (occurrence: ES)
  Receive Date: 20131024
  Receipt Date: 20131024
  Transmission Date: 20140711
  Serious: Yes (Death, Other)
  Sender: FDA-Public Use
  Company Number: PHHY2013ES116418

PATIENT
  Age: 39 Year
  Sex: Male

DRUGS (11)
  1. CICLOSPORIN [Suspect]
     Indication: PROPHYLAXIS AGAINST GRAFT VERSUS HOST DISEASE
  2. FLUDARABINE [Suspect]
     Indication: CHRONIC LYMPHOCYTIC LEUKAEMIA
  3. METHOTREXATE [Suspect]
     Indication: PROPHYLAXIS AGAINST GRAFT VERSUS HOST DISEASE
  4. TACROLIMUS [Suspect]
     Indication: GRAFT VERSUS HOST DISEASE IN SKIN
  5. TACROLIMUS [Suspect]
     Indication: GRAFT VERSUS HOST DISEASE IN LUNG
  6. MEFLOQUINE [Suspect]
     Indication: JC VIRUS INFECTION
  7. RITUXIMAB [Suspect]
     Indication: CHRONIC LYMPHOCYTIC LEUKAEMIA
  8. CYCLOPHOSPHAMIDE [Concomitant]
     Indication: CHRONIC LYMPHOCYTIC LEUKAEMIA
  9. CYCLOPHOSPHAMIDE [Concomitant]
     Indication: SURGICAL PRECONDITIONING
  10. LENALIDOMIDE [Concomitant]
  11. BENDAMUSTINE [Concomitant]

REACTIONS (14)
  - Psychotic disorder [Fatal]
  - Abnormal behaviour [Fatal]
  - Ataxia [Fatal]
  - Diplopia [Fatal]
  - Convulsion [Fatal]
  - Psychomotor retardation [Fatal]
  - Aphasia [Fatal]
  - Lymphopenia [Fatal]
  - JC virus infection [Fatal]
  - Chronic lymphocytic leukaemia recurrent [Unknown]
  - Drug ineffective [Unknown]
  - Progressive multifocal leukoencephalopathy [Fatal]
  - Confusional state [Fatal]
  - Apathy [Fatal]
